FAERS Safety Report 7935301-3 (Version None)
Quarter: 2011Q4

REPORT INFORMATION
  Report Type: 
  Country: None (occurrence: None)
  Receive Date: 20111122
  Receipt Date: 20111107
  Transmission Date: 20120403
  Serious: Yes (Other)
  Sender: FDA-Public Use
  Company Number: IN-WATSON-2011-19645

PATIENT
  Age: 67 Year
  Sex: Male

DRUGS (1)
  1. HYDROXYZINE [Suspect]
     Indication: PSORIASIS
     Dosage: 10 MG, UNK

REACTIONS (1)
  - ACUTE GENERALISED EXANTHEMATOUS PUSTULOSIS [None]
